FAERS Safety Report 7055896-4 (Version None)
Quarter: 2010Q4

REPORT INFORMATION
  Report Type: 
  Country: None (occurrence: None)
  Receive Date: 20101021
  Receipt Date: 20101013
  Transmission Date: 20110411
  Serious: Yes (Other)
  Sender: FDA-Public Use
  Company Number: CHPA2010CA16230

PATIENT
  Age: 67 Year
  Sex: Male

DRUGS (3)
  1. BUCKLEY'S DM (NCH) [Suspect]
     Dosage: 2 TSP, BID
     Route: 048
     Dates: start: 20101012, end: 20101012
  2. BUCKLEY'S DM (NCH) [Suspect]
     Dosage: UNK, UNK
  3. HALLS [Suspect]
     Dosage: UNK, UNK
     Dates: start: 20101012

REACTIONS (3)
  - CEREBROVASCULAR ACCIDENT [None]
  - DIABETES MELLITUS [None]
  - MYOCARDIAL INFARCTION [None]
